FAERS Safety Report 12980209 (Version 1)
Quarter: 2016Q4

REPORT INFORMATION
  Report Type: Spontaneous
  Country: US (occurrence: US)
  Receive Date: 20161128
  Receipt Date: 20161128
  Transmission Date: 20170207
  Serious: Yes (Other)
  Sender: FDA-Public Use
  Company Number: US-ACTAVIS-2015-22317

PATIENT

DRUGS (2)
  1. CARBOPLATIN (WATSON LABORATORIES) [Suspect]
     Active Substance: CARBOPLATIN
     Indication: METASTATIC NEOPLASM
  2. CARBOPLATIN (WATSON LABORATORIES) [Suspect]
     Active Substance: CARBOPLATIN
     Indication: SEBACEOUS CARCINOMA
     Dosage: UNK, UNKNOWN
     Route: 065

REACTIONS (2)
  - Disease progression [Unknown]
  - Treatment failure [Unknown]
